FAERS Safety Report 11054889 (Version 2)
Quarter: 2015Q2

REPORT INFORMATION
  Report Type: Spontaneous
  Country: US (occurrence: US)
  Receive Date: 20150422
  Receipt Date: 20150618
  Transmission Date: 20150821
  Serious: Yes (Other)
  Sender: FDA-Public Use
  Company Number: US-PFIZER INC-2015132332

PATIENT
  Age: 67 Year
  Sex: Female

DRUGS (8)
  1. ASPIRIN. [Concomitant]
     Active Substance: ASPIRIN
     Dosage: 81 MG, UNK
  2. DIOVAN [Concomitant]
     Active Substance: VALSARTAN
     Indication: BLOOD CHOLESTEROL ABNORMAL
     Dosage: 160 MG, UNK
  3. CLOPIDOGREL [Concomitant]
     Active Substance: CLOPIDOGREL BISULFATE
     Dosage: 75 MG, UNK
  4. LANTUS [Concomitant]
     Active Substance: INSULIN GLARGINE
     Dosage: UNK
  5. INSULIN [Concomitant]
     Active Substance: INSULIN NOS
     Dosage: UNK
  6. ZOCOR [Concomitant]
     Active Substance: SIMVASTATIN
     Dosage: 20 MG, UNK
  7. HUMULIN NOS [Concomitant]
     Active Substance: INSULIN HUMAN
     Dosage: UNK
  8. LYRICA [Suspect]
     Active Substance: PREGABALIN
     Dosage: 75 MG, 2X/DAY (1 CAP TWICE A DAY)
     Route: 048
     Dates: start: 2010

REACTIONS (1)
  - Peripheral arterial occlusive disease [Unknown]
